FAERS Safety Report 23116647 (Version 1)
Quarter: 2023Q4

REPORT INFORMATION
  Report Type: Spontaneous
  Country: US (occurrence: None)
  Receive Date: 20231026
  Receipt Date: 20231026
  Transmission Date: 20240110
  Serious: Yes (Hospitalization)
  Sender: FDA-Public Use
  Company Number: None

PATIENT
  Sex: Female

DRUGS (3)
  1. OPSUMIT [Suspect]
     Active Substance: MACITENTAN
     Indication: Pulmonary arterial hypertension
     Dosage: FREQUENCY : DAILY;?
     Route: 048
     Dates: start: 202304
  2. ADEMPAS [Concomitant]
     Active Substance: RIOCIGUAT
  3. ORENITRAVI ER [Concomitant]

REACTIONS (6)
  - COVID-19 [None]
  - Pneumonia [None]
  - Peripheral swelling [None]
  - Dizziness [None]
  - Cough [None]
  - Oxygen consumption increased [None]
